FAERS Safety Report 15807253 (Version 2)
Quarter: 2019Q1

REPORT INFORMATION
  Report Type: Spontaneous
  Country: ES (occurrence: ES)
  Receive Date: 20190110
  Receipt Date: 20190123
  Transmission Date: 20190417
  Serious: Yes (Death, Other)
  Sender: FDA-Public Use
  Company Number: ES-BRISTOL-MYERS SQUIBB COMPANY-BMS-2019-000592

PATIENT
  Age: 57 Year
  Sex: Male

DRUGS (1)
  1. NIVOLUMAB [Suspect]
     Active Substance: NIVOLUMAB
     Indication: RENAL CANCER
     Dosage: 480 MG, UNK
     Route: 041
     Dates: start: 20180528, end: 20181126

REACTIONS (2)
  - Haemolytic anaemia [Fatal]
  - Clostridium test positive [Unknown]

NARRATIVE: CASE EVENT DATE: 20181129
